FAERS Safety Report 6702207-7 (Version None)
Quarter: 2010Q2

REPORT INFORMATION
  Report Type: 
  Country: None (occurrence: None)
  Receive Date: 20100429
  Receipt Date: 20100423
  Transmission Date: 20101027
  Serious: Yes (Other)
  Sender: FDA-Public Use
  Company Number: DE-PFIZER INC-2010019812

PATIENT
  Sex: Female

DRUGS (1)
  1. REVATIO [Suspect]
     Dosage: UNK
     Route: 048
     Dates: start: 20091201

REACTIONS (1)
  - INSULINOMA [None]
